FAERS Safety Report 5843478-9 (Version None)
Quarter: 2008Q3

REPORT INFORMATION
  Report Type: 
  Country: None (occurrence: None)
  Receive Date: 20080811
  Receipt Date: 20080724
  Transmission Date: 20090109
  Serious: Yes (Hospitalization)
  Sender: FDA-Public Use
  Company Number: FR-2008-0309

PATIENT
  Age: 54 Year
  Sex: Male

DRUGS (17)
  1. NAVELBINE [Suspect]
     Indication: LUNG ADENOCARCINOMA
     Dosage: 57 MG UNK IV
     Route: 042
     Dates: start: 20080602, end: 20080610
  2. GEMZAR [Suspect]
     Indication: LUNG ADENOCARCINOMA
     Dosage: 2360 MG UNK IV
     Route: 042
     Dates: start: 20080623
  3. CISPLATIN [Suspect]
     Indication: LUNG ADENOCARCINOMA
     Dosage: 151 MG UNK IV
     Route: 042
     Dates: start: 20080602, end: 20080602
  4. CISPLATIN [Suspect]
     Indication: LUNG ADENOCARCINOMA
     Dosage: 142 MG UNK IV
     Route: 042
     Dates: start: 20080623, end: 20080623
  5. CEFTAZIDIME [Concomitant]
  6. SIBELIUM [Concomitant]
  7. SIMVASTATINE A [Concomitant]
  8. PLAVIX [Concomitant]
  9. ATENOLOL [Concomitant]
  10. EQUANIL [Concomitant]
  11. HAVLANE [Concomitant]
  12. RABEPRAZOLE SODIUM [Concomitant]
  13. ALPRAZOLAM [Concomitant]
  14. ACETAMINOPHEN [Concomitant]
  15. JOSIR [Concomitant]
  16. CEBUTID [Concomitant]
  17. DEROXAT [Concomitant]

REACTIONS (1)
  - ACUTE CORONARY SYNDROME [None]
